FAERS Safety Report 5024725-2 (Version None)
Quarter: 2006Q2

REPORT INFORMATION
  Report Type: 
  Country: None (occurrence: None)
  Receive Date: 20060427
  Receipt Date: 20060204
  Transmission Date: 20061013
  Serious: Yes (Other)
  Sender: FDA-Public Use
  Company Number: 2006018848

PATIENT
  Age: 66 Year
  Sex: Female
  Weight: 56.246 kg

DRUGS (7)
  1. ZITHROMAX [Suspect]
     Indication: NASOPHARYNGITIS
     Dosage: 500 MG (250 MG, 1 IN 1 D)
     Dates: start: 20050203, end: 20050203
  2. CORGARD [Concomitant]
  3. SYNTHROID [Concomitant]
  4. PROTONIX [Concomitant]
  5. FOSAMAX [Concomitant]
  6. ASPIRIN [Concomitant]
  7. XANAX [Concomitant]

REACTIONS (5)
  - ARRHYTHMIA [None]
  - DIZZINESS [None]
  - DYSGEUSIA [None]
  - FEELING ABNORMAL [None]
  - NERVOUSNESS [None]
